FAERS Safety Report 8794354 (Version 16)
Quarter: 2014Q3

REPORT INFORMATION
  Report Type: Report from Study
  Country: CA (occurrence: CA)
  Receive Date: 20120917
  Receipt Date: 20140919
  Transmission Date: 20150326
  Serious: Yes (Death, Hospitalization, Other)
  Sender: FDA-Public Use
  Company Number: PHHY2010CA81819

PATIENT
  Age: 58 Year
  Sex: Male

DRUGS (2)
  1. SANDOSTATIN LAR DEPOT [Suspect]
     Active Substance: OCTREOTIDE ACETATE
     Indication: NEUROENDOCRINE CARCINOMA
     Dosage: 20 MG, EVERY 4 WEEKS
     Route: 030
     Dates: start: 20101029
  2. SANDOSTATIN LAR DEPOT [Suspect]
     Active Substance: OCTREOTIDE ACETATE
     Dosage: 30 MG, EVERY 4 WEEKS
     Route: 030
     Dates: end: 20140905

REACTIONS (15)
  - Blood pressure increased [Unknown]
  - Influenza [Unknown]
  - Pain [Unknown]
  - Muscle spasms [Unknown]
  - Fatigue [Unknown]
  - Jaundice [Unknown]
  - Death [Fatal]
  - Blood pressure diastolic decreased [Unknown]
  - Liver disorder [Unknown]
  - Body temperature decreased [Unknown]
  - Dehydration [Unknown]
  - Malaise [Unknown]
  - Abdominal discomfort [Recovering/Resolving]
  - Weight decreased [Not Recovered/Not Resolved]
  - Localised intraabdominal fluid collection [Unknown]

NARRATIVE: CASE EVENT DATE: 2014
